FAERS Safety Report 5230506-7 (Version None)
Quarter: 2007Q1

REPORT INFORMATION
  Report Type: 
  Country: None (occurrence: None)
  Receive Date: 20070202
  Receipt Date: 20070122
  Transmission Date: 20070707
  Serious: Yes (Death, Hospitalization)
  Sender: FDA-Public Use
  Company Number: 2006-02408

PATIENT
  Age: 58 Year

DRUGS (6)
  1. VELCADE [Suspect]
     Indication: MULTIPLE MYELOMA
  2. ONDASETRON (ONDANSETRON) [Concomitant]
  3. ESOMEPRAZOLE (ESOMEPRAZOLE) [Concomitant]
  4. FLUCONAZOLE [Concomitant]
  5. THIAMINE (THIAMINE) [Concomitant]
  6. NIFEDIPINE [Concomitant]

REACTIONS (2)
  - DUODENAL ULCER HAEMORRHAGE [None]
  - MULTI-ORGAN FAILURE [None]
